FAERS Safety Report 8891077 (Version 2)
Quarter: 2012Q4

REPORT INFORMATION
  Report Type: 
  Country: US (occurrence: US)
  Receive Date: 20121107
  Receipt Date: 20121126
  Transmission Date: 20130627
  Serious: No
  Sender: FDA-Public Use
  Company Number: US-VERTEX PHARMACEUTICAL INC.-2012-024151

PATIENT
  Age: 54 None
  Sex: Female
  Weight: 77 kg

DRUGS (5)
  1. VX-950 (TELAPREVIR) [Suspect]
     Indication: HEPATITIS C
     Dosage: 750 mg, tid
     Route: 048
     Dates: start: 2012
  2. PEGASYS [Concomitant]
     Indication: HEPATITIS C
     Dosage: 180 ?g, UNK
     Route: 058
     Dates: start: 2012
  3. RIBAVIRIN [Concomitant]
     Indication: HEPATITIS C
     Dosage: 600 mg, bid
     Route: 048
     Dates: start: 2012
  4. PRILOSEC                           /00661201/ [Concomitant]
     Dosage: 20 mg, qd
     Route: 048
  5. IBUPROFEN [Concomitant]
     Dosage: 200 mg, prn
     Route: 048

REACTIONS (6)
  - Influenza like illness [Unknown]
  - Fatigue [Unknown]
  - Pruritus generalised [Unknown]
  - Anorectal discomfort [Unknown]
  - Anal pruritus [Unknown]
  - Nausea [Unknown]
